FAERS Safety Report 12446747 (Version 1)
Quarter: 2016Q2

REPORT INFORMATION
  Report Type: Spontaneous
  Country: US (occurrence: None)
  Receive Date: 20160607
  Receipt Date: 20160607
  Transmission Date: 20160815
  Serious: Yes (Hospitalization, Disabling)
  Sender: FDA-Public Use
  Company Number: None

PATIENT
  Age: 31 Year
  Sex: Female
  Weight: 86.18 kg

DRUGS (3)
  1. SUBOXONE [Concomitant]
     Active Substance: BUPRENORPHINE HYDROCHLORIDE\NALOXONE HYDROCHLORIDE
  2. LITHIUM CARBONATE, 300 MG [Suspect]
     Active Substance: LITHIUM CARBONATE
     Indication: AFFECTIVE DISORDER
     Route: 048
  3. WELLBUTRON [Concomitant]

REACTIONS (8)
  - Sleep disorder [None]
  - Feeling abnormal [None]
  - Suicidal ideation [None]
  - Hypophagia [None]
  - Intracranial pressure increased [None]
  - Pleurisy [None]
  - Tachyphrenia [None]
  - Pneumonia [None]

NARRATIVE: CASE EVENT DATE: 20160312
